FAERS Safety Report 8817587 (Version 1)
Quarter: 2012Q4

REPORT INFORMATION
  Report Type: 
  Country: US (occurrence: US)
  Receive Date: 20121001
  Receipt Date: 20121001
  Transmission Date: 20130627
  Serious: Yes (Hospitalization)
  Sender: FDA-Public Use
  Company Number: US-UCBSA-065026

PATIENT
  Sex: Female

DRUGS (19)
  1. KEPPRA [Suspect]
     Indication: CONVULSION
     Dates: start: 201203, end: 2012
  2. KEPPRA [Suspect]
     Indication: CONVULSION
     Dosage: DOSE INCREASED
     Dates: start: 2012, end: 2012
  3. VIMPAT [Suspect]
     Indication: CONVULSION
     Dates: start: 20120821, end: 20120902
  4. NABUMETONE [Concomitant]
     Indication: MUSCLE RELAXANT THERAPY
  5. GABAPENTIN [Concomitant]
     Indication: NEUROPATHY PERIPHERAL
     Dosage: 300 MG 6 TABLETS DAILY
  6. KLORCON [Concomitant]
     Indication: ELECTROLYTE SUBSTITUTION THERAPY
     Dosage: DAILY DOSE : 10 MEQ
  7. SENNA [Concomitant]
     Indication: DIARRHOEA
  8. VITAMIN D [Concomitant]
  9. VITAMIN B12 [Concomitant]
  10. PROTONIX [Concomitant]
     Indication: GASTROOESOPHAGEAL REFLUX DISEASE
     Dosage: DAILY DOSE : 40 MG
  11. XANAX [Concomitant]
     Indication: STRESS
     Dosage: 0.25 MG THREE TIMES A DAY AS NEEDED
  12. AMITRYPTYLINE [Concomitant]
     Indication: INSOMNIA
     Dosage: BED TIME
  13. ZOCOR [Concomitant]
     Indication: BLOOD CHOLESTEROL
     Dosage: BED TIME
  14. RANITIDINE [Concomitant]
     Indication: GASTROOESOPHAGEAL REFLUX DISEASE
     Dosage: BED TIME
  15. DILANTIN [Concomitant]
     Indication: CONVULSION PROPHYLAXIS
     Dosage: 100mg at 07:00AM, 100mg at 12:00PM and 125mg at 14:00PM
     Dates: start: 20120228
  16. CITALOPRAM [Concomitant]
     Indication: DEPRESSION
     Dosage: DAILY DOSE : 10 MG
  17. LEVOTHYROXINE [Concomitant]
     Indication: THYROID DISORDER
     Dosage: DAIILY DOSE : 50MCG
  18. LASIX [Concomitant]
     Indication: FLUID RETENTION
     Dosage: DAILY DOSE : 20 MG
  19. TIZANIDINE [Concomitant]
     Indication: MUSCLE RELAXANT THERAPY
     Dosage: DAILY DOSE : 2-4MG

REACTIONS (2)
  - Convulsion [Recovered/Resolved]
  - Drug ineffective [Recovered/Resolved]
